FAERS Safety Report 16226481 (Version 2)
Quarter: 2019Q2

REPORT INFORMATION
  Report Type: Spontaneous
  Country: US (occurrence: US)
  Receive Date: 20190423
  Receipt Date: 20190508
  Transmission Date: 20190711
  Serious: No
  Sender: FDA-Public Use
  Company Number: US-AMGEN-USASP2019060393

PATIENT
  Age: 52 Year
  Sex: Female
  Weight: 97 kg

DRUGS (5)
  1. CALCITRIOL. [Concomitant]
     Active Substance: CALCITRIOL
     Indication: BLOOD PARATHYROID HORMONE INCREASED
     Dosage: 2 MICROGRAM, 3 TIMES/WK
     Dates: start: 20190308
  2. PARSABIV [Suspect]
     Active Substance: ETELCALCETIDE HYDROCHLORIDE
     Dosage: 5 MILLIGRAM, 3 TIMES/WK (EACH TREATMENT)
     Route: 042
  3. SENSIPAR [Suspect]
     Active Substance: CINACALCET HYDROCHLORIDE
     Dosage: 60 MILLIGRAM, QD
     Route: 048
     Dates: end: 20190425
  4. PARSABIV [Suspect]
     Active Substance: ETELCALCETIDE HYDROCHLORIDE
     Indication: BLOOD PARATHYROID HORMONE INCREASED
     Dosage: 2.5 MILLIGRAM, 3 TIMES/WK (EACH TREATMENT)
     Route: 065
     Dates: start: 20190403
  5. SENSIPAR [Suspect]
     Active Substance: CINACALCET HYDROCHLORIDE
     Indication: BLOOD PARATHYROID HORMONE INCREASED
     Dosage: 30 MILLIGRAM, QD
     Route: 048
     Dates: start: 20190401

REACTIONS (4)
  - Blood parathyroid hormone increased [Unknown]
  - Labelled drug-drug interaction medication error [Unknown]
  - Underdose [Unknown]
  - Treatment noncompliance [Unknown]

NARRATIVE: CASE EVENT DATE: 2019
